FAERS Safety Report 10991140 (Version 1)
Quarter: 2015Q2

REPORT INFORMATION
  Report Type: Spontaneous
  Country: US (occurrence: US)
  Receive Date: 20150406
  Receipt Date: 20150406
  Transmission Date: 20150821
  Serious: No
  Sender: FDA-Public Use
  Company Number: US-009507513-1504USA002443

PATIENT
  Sex: Male

DRUGS (2)
  1. FINASTERIDE. [Suspect]
     Active Substance: FINASTERIDE
  2. PROPECIA [Suspect]
     Active Substance: FINASTERIDE

REACTIONS (2)
  - Affective disorder [Unknown]
  - Erectile dysfunction [Unknown]
